FAERS Safety Report 23361654 (Version 2)
Quarter: 2024Q1

REPORT INFORMATION
  Report Type: Spontaneous
  Country: FR (occurrence: FR)
  Receive Date: 20240103
  Receipt Date: 20240125
  Transmission Date: 20240410
  Serious: Yes (Hospitalization, Other)
  Sender: FDA-Public Use
  Company Number: None

PATIENT
  Age: 75 Year
  Sex: Male

DRUGS (12)
  1. CABOMETYX [Suspect]
     Active Substance: CABOZANTINIB S-MALATE
     Indication: Renal cancer
     Dosage: 60 MG, QD
     Route: 048
     Dates: start: 20230602, end: 20230817
  2. OPDIVO [Suspect]
     Active Substance: NIVOLUMAB
     Indication: Renal cancer
     Dosage: NOT FILLED IN
     Route: 048
     Dates: start: 20230330, end: 20230618
  3. Solupred [Concomitant]
     Indication: Product used for unknown indication
  4. ATORVASTATIN [Concomitant]
     Active Substance: ATORVASTATIN
     Indication: Product used for unknown indication
  5. FUROSEMIDE [Concomitant]
     Active Substance: FUROSEMIDE
     Indication: Product used for unknown indication
  6. SPIRIVA [Concomitant]
     Active Substance: TIOTROPIUM BROMIDE MONOHYDRATE
     Indication: Product used for unknown indication
  7. POTASSIUM CHLORIDE [Concomitant]
     Active Substance: POTASSIUM CHLORIDE
     Indication: Product used for unknown indication
  8. APIXABAN [Concomitant]
     Active Substance: APIXABAN
     Indication: Product used for unknown indication
  9. SERETIDE [Concomitant]
     Active Substance: FLUTICASONE PROPIONATE\SALMETEROL XINAFOATE
     Indication: Product used for unknown indication
  10. NEBIVOLOL [Concomitant]
     Active Substance: NEBIVOLOL
     Indication: Product used for unknown indication
  11. LANSOPRAZOLE [Concomitant]
     Active Substance: LANSOPRAZOLE
     Indication: Product used for unknown indication
  12. RAMIPRIL [Concomitant]
     Active Substance: RAMIPRIL
     Indication: Product used for unknown indication

REACTIONS (6)
  - Interstitial lung disease [Recovered/Resolved with Sequelae]
  - Hepatotoxicity [Recovered/Resolved]
  - Haemolytic anaemia [Recovering/Resolving]
  - Leukopenia [Recovered/Resolved]
  - Thrombocytopenia [Recovered/Resolved]
  - Lymphopenia [Not Recovered/Not Resolved]

NARRATIVE: CASE EVENT DATE: 20230618
